FAERS Safety Report 5553995-7 (Version None)
Quarter: 2007Q4

REPORT INFORMATION
  Report Type: 
  Country: None (occurrence: None)
  Receive Date: 20071213
  Receipt Date: 20041201
  Transmission Date: 20080405
  Serious: Yes (Other)
  Sender: FDA-Public Use
  Company Number: GB-JNJFOC-20071106724

PATIENT
  Age: 51 Year
  Sex: Female
  Weight: 61 kg

DRUGS (2)
  1. HALOPERIDOL [Suspect]
     Indication: AGITATED DEPRESSION
     Route: 048
  2. LIPID LOWERING THERAPY [Concomitant]
     Route: 065

REACTIONS (1)
  - WEIGHT INCREASED [None]
